FAERS Safety Report 23665776 (Version 1)
Quarter: 2024Q1

REPORT INFORMATION
  Report Type: Spontaneous
  Country: ES (occurrence: ES)
  Receive Date: 20240323
  Receipt Date: 20240323
  Transmission Date: 20240410
  Serious: Yes (Other)
  Sender: FDA-Public Use
  Company Number: None

PATIENT
  Age: 29 Year
  Sex: Male

DRUGS (3)
  1. RINVOQ [Suspect]
     Active Substance: UPADACITINIB
     Indication: Dermatitis atopic
     Route: 048
     Dates: start: 20230502, end: 20240303
  2. SHINGRIX [Concomitant]
     Active Substance: RECOMBINANT VARICELLA ZOSTER VIRUS (VZV) GLYCOPROTEIN E
     Indication: Herpes zoster immunisation
     Dosage: TIME INTERVAL: 1 TOTAL
     Route: 030
     Dates: start: 20240124, end: 20240124
  3. SHINGRIX [Concomitant]
     Active Substance: RECOMBINANT VARICELLA ZOSTER VIRUS (VZV) GLYCOPROTEIN E
     Indication: Herpes zoster immunisation
     Dosage: TIME INTERVAL: 1 TOTAL: POLVO Y SUSPENSION PARA SUSPENSION INYECTABLE, 1 VIAL (POLVO) Y 1 VIAL (S...
     Route: 030
     Dates: start: 20231109, end: 20231109

REACTIONS (2)
  - Ophthalmic herpes zoster [Recovering/Resolving]
  - Ophthalmic herpes simplex [Recovering/Resolving]

NARRATIVE: CASE EVENT DATE: 20240209
